FAERS Safety Report 7098404-4 (Version None)
Quarter: 2010Q4

REPORT INFORMATION
  Report Type: 
  Country: None (occurrence: None)
  Receive Date: 20101112
  Receipt Date: 20101101
  Transmission Date: 20110411
  Serious: Yes (Other)
  Sender: FDA-Public Use
  Company Number: SE-SANOFI-AVENTIS-2010SA066541

PATIENT
  Sex: Male

DRUGS (6)
  1. MULTAQ [Suspect]
     Indication: ATRIAL FIBRILLATION
     Route: 048
     Dates: start: 20100623, end: 20100802
  2. ENALAPRIL MALEATE [Concomitant]
  3. WARAN [Concomitant]
  4. BISOPROLOL FUMARATE [Concomitant]
  5. ZOPICLONE [Concomitant]
  6. SIMVASTATIN [Concomitant]

REACTIONS (2)
  - BLOOD CREATININE INCREASED [None]
  - HEPATIC ENZYME INCREASED [None]
